FAERS Safety Report 8160224-7 (Version None)
Quarter: 2012Q1

REPORT INFORMATION
  Report Type: 
  Country: None (occurrence: None)
  Receive Date: 20120223
  Receipt Date: 20120214
  Transmission Date: 20120608
  Serious: Yes (Hospitalization)
  Sender: FDA-Public Use
  Company Number: IT-PFIZER INC-2012029731

PATIENT
  Age: 54 Year
  Sex: Female
  Weight: 71 kg

DRUGS (7)
  1. CRIZOTINIB [Suspect]
     Indication: NON-SMALL CELL LUNG CANCER
     Dosage: 250 MG, 2X/DAY
     Route: 048
     Dates: start: 20120125, end: 20120206
  2. PEMETREXED [Suspect]
     Indication: NON-SMALL CELL LUNG CANCER
     Dosage: 844 MG DAY 1 OF 21 DAY CYCLE
     Route: 042
     Dates: start: 20111130, end: 20111221
  3. TRAMADOL HCL [Concomitant]
     Indication: PAIN
  4. CISPLATIN [Suspect]
     Indication: NON-SMALL CELL LUNG CANCER
     Dosage: 126 MG, DAY 1 OF 21 DAY OF CYCLE
     Route: 042
     Dates: start: 20111130, end: 20111221
  5. LANSOPRAZOLE [Concomitant]
     Indication: PROPHYLAXIS AGAINST GASTROINTESTINAL ULCER
     Dosage: UNK
     Dates: start: 20120119
  6. PARACODINE [Concomitant]
     Indication: COUGH
     Dosage: UNK
     Dates: start: 20120119
  7. MEDROL [Concomitant]
     Indication: COUGH
     Dosage: UNK
     Dates: start: 20120119

REACTIONS (1)
  - CEREBRAL ISCHAEMIA [None]
